FAERS Safety Report 7602106-2 (Version None)
Quarter: 2011Q3

REPORT INFORMATION
  Report Type: 
  Country: None (occurrence: None)
  Receive Date: 20110711
  Receipt Date: 20110711
  Transmission Date: 20111222
  Serious: Yes (Life-Threatening, Hospitalization)
  Sender: FDA-Public Use
  Company Number: None

PATIENT
  Age: 55 Year
  Sex: Female
  Weight: 48.1 kg

DRUGS (6)
  1. ABRAXANE [Concomitant]
     Indication: BREAST CANCER METASTATIC
     Dosage: 145 MG
     Route: 042
     Dates: start: 20110513, end: 20110610
  2. ABRAXANE [Concomitant]
     Indication: METASTASES TO LUNG
     Dosage: 145 MG
     Route: 042
     Dates: start: 20110513, end: 20110610
  3. ABRAXANE [Concomitant]
     Indication: METASTASES TO BONE
     Dosage: 145 MG
     Route: 042
     Dates: start: 20110513, end: 20110610
  4. PACLITAXEL [Suspect]
     Indication: METASTASES TO BONE
     Dosage: 114 MG
     Route: 042
     Dates: start: 20110408, end: 20110512
  5. PACLITAXEL [Suspect]
     Indication: BREAST CANCER METASTATIC
     Dosage: 114 MG
     Route: 042
     Dates: start: 20110408, end: 20110512
  6. PACLITAXEL [Suspect]
     Indication: METASTASES TO LUNG
     Dosage: 114 MG
     Route: 042
     Dates: start: 20110408, end: 20110512

REACTIONS (4)
  - TACHYCARDIA [None]
  - ARTHRALGIA [None]
  - PULMONARY EMBOLISM [None]
  - WEIGHT BEARING DIFFICULTY [None]
